FAERS Safety Report 9290246 (Version 7)
Quarter: 2015Q4

REPORT INFORMATION
  Report Type: Spontaneous
  Country: US (occurrence: US)
  Receive Date: 20130515
  Receipt Date: 20151222
  Transmission Date: 20160305
  Serious: Yes (Hospitalization, Other)
  Sender: FDA-Public Use
  Company Number: US-PFIZER INC-2013145826

PATIENT
  Sex: Female

DRUGS (2)
  1. XELJANZ [Suspect]
     Active Substance: TOFACITINIB CITRATE
     Dosage: 5 MG, 2X/DAY
     Route: 048
     Dates: start: 201304, end: 201510
  2. XELJANZ [Suspect]
     Active Substance: TOFACITINIB CITRATE
     Indication: RHEUMATOID ARTHRITIS
     Dosage: 5 MG, 2X/DAY
     Route: 048
     Dates: start: 201304, end: 201311

REACTIONS (7)
  - Gastrointestinal obstruction [Unknown]
  - Alopecia [Unknown]
  - Neoplasm malignant [Unknown]
  - Disease recurrence [Not Recovered/Not Resolved]
  - Metastatic uterine cancer [Not Recovered/Not Resolved]
  - Metastases to lung [Unknown]
  - Lung disorder [Unknown]
